FAERS Safety Report 4506815-3 (Version None)
Quarter: 2004Q4

REPORT INFORMATION
  Report Type: 
  Country: None (occurrence: None)
  Receive Date: 20041122
  Receipt Date: 20041018
  Transmission Date: 20050328
  Serious: Yes (Life-Threatening, Hospitalization, Other)
  Sender: FDA-Public Use
  Company Number: 379300

PATIENT
  Age: 57 Year
  Sex: Female

DRUGS (14)
  1. CARVEDILOL [Suspect]
     Indication: HYPERTENSION
     Dosage: 10MG PER DAY
     Route: 048
     Dates: start: 20040720, end: 20040818
  2. CRAVIT [Suspect]
     Indication: PYREXIA
     Dosage: 100MG PER DAY
     Route: 048
     Dates: start: 20040810, end: 20040815
  3. ALLOPURINOL [Suspect]
     Indication: DRUG USE FOR UNKNOWN INDICATION
     Route: 048
     Dates: start: 20040720, end: 20040818
  4. NORVASC [Concomitant]
     Dates: start: 20040720, end: 20040818
  5. DIOVAN [Concomitant]
     Dates: start: 20040720, end: 20040818
  6. TENORMIN [Concomitant]
     Dates: start: 20040720, end: 20040818
  7. LASIX [Concomitant]
     Dates: start: 20040720, end: 20040818
  8. LIPITOR [Concomitant]
     Dates: start: 20040720, end: 20040818
  9. FERROUS CITRATE [Concomitant]
     Dates: start: 20040729, end: 20040818
  10. GLYBURIDE [Concomitant]
     Dates: start: 20040720, end: 20040818
  11. BASEN [Concomitant]
     Dates: start: 20040720, end: 20040818
  12. ITOROL [Concomitant]
     Dates: start: 20040720, end: 20040820
  13. BAYASPIRIN [Concomitant]
     Dates: start: 20040720, end: 20040820
  14. SIGMART [Concomitant]
     Dates: start: 20040720, end: 20040820

REACTIONS (10)
  - ALANINE AMINOTRANSFERASE INCREASED [None]
  - ASPARTATE AMINOTRANSFERASE INCREASED [None]
  - BLISTER [None]
  - HEPATIC FUNCTION ABNORMAL [None]
  - ILL-DEFINED DISORDER [None]
  - PAIN [None]
  - PYREXIA [None]
  - RASH [None]
  - STEVENS-JOHNSON SYNDROME [None]
  - WHITE BLOOD CELL COUNT INCREASED [None]
